FAERS Safety Report 5532666-7 (Version None)
Quarter: 2007Q4

REPORT INFORMATION
  Report Type: 
  Country: None (occurrence: None)
  Receive Date: 20071203
  Receipt Date: 20071128
  Transmission Date: 20080405
  Serious: Yes (Other)
  Sender: FDA-Public Use
  Company Number: IE-MERCK-0711GBR00117

PATIENT
  Age: 51 Year
  Sex: Female

DRUGS (20)
  1. FOSAMAX [Suspect]
     Indication: OSTEOPOROSIS
     Route: 048
     Dates: start: 20040106, end: 20060715
  2. GABAPENTIN [Concomitant]
     Route: 065
  3. AMITRIPTYLINE HYDROCHLORIDE [Concomitant]
     Route: 065
  4. PRAVASTATIN SODIUM [Concomitant]
     Route: 065
  5. LACTULOSE [Concomitant]
     Route: 065
  6. CALCIUM CARBONATE AND CHOLECALCIFEROL [Concomitant]
     Route: 065
  7. PREGABALIN [Concomitant]
     Route: 065
  8. LANSOPRAZOLE [Concomitant]
     Route: 065
  9. NIMESULIDE [Concomitant]
     Route: 065
  10. ACETAMINOPHEN AND CARBINOXAMINE MALEATE AND PHENYLEPHRINE HYDROCHLORID [Concomitant]
     Route: 065
  11. ASPIRIN [Concomitant]
     Route: 065
  12. DULOXETINE HYDROCHLORIDE [Concomitant]
     Route: 065
  13. ALFACALCIDOL [Concomitant]
     Route: 065
  14. ACETAMINOPHEN AND PROPOXYPHENE HYDROCHLORIDE [Concomitant]
     Route: 065
  15. HYDROXOCOBALAMIN [Concomitant]
     Route: 065
  16. ESTROGENS (UNSPECIFIED) [Concomitant]
     Route: 065
  17. NAPROXEN [Concomitant]
     Route: 065
  18. PREDNISOLONE [Concomitant]
     Route: 065
  19. VITAMIN D (UNSPECIFIED) [Concomitant]
     Route: 065
  20. VALERIAN [Concomitant]
     Route: 065

REACTIONS (1)
  - PAIN [None]
